FAERS Safety Report 16854119 (Version 1)
Quarter: 2019Q4

REPORT INFORMATION
  Report Type: Spontaneous
  Country: US (occurrence: US)
  Receive Date: 20190926
  Receipt Date: 20190926
  Transmission Date: 20200122
  Serious: Yes (Life-Threatening, Hospitalization, Disabling)
  Sender: FDA-Public Use
  Company Number: None

PATIENT
  Age: 60 Year
  Weight: 76.5 kg

DRUGS (16)
  1. RISPERIDONE. [Suspect]
     Active Substance: RISPERIDONE
  2. LAMOTRIGINE. [Concomitant]
     Active Substance: LAMOTRIGINE
  3. PROZAC [Suspect]
     Active Substance: FLUOXETINE HYDROCHLORIDE
  4. LEVOTHYROXINE. [Concomitant]
     Active Substance: LEVOTHYROXINE
  5. VITAMIN D [Concomitant]
     Active Substance: VITAMIN D NOS
  6. MAGNESIUM [Concomitant]
     Active Substance: MAGNESIUM
  7. ATIVAN [Suspect]
     Active Substance: LORAZEPAM
  8. TIOTIXENE [Concomitant]
     Active Substance: THIOTHIXENE
  9. VITAMIN B [Concomitant]
     Active Substance: VITAMIN B
  10. GEODON [Suspect]
     Active Substance: ZIPRASIDONE HYDROCHLORIDE\ZIPRASIDONE MESYLATE
     Indication: PSYCHOTHERAPY
     Route: 048
  11. 81MG ASPIRIN [Concomitant]
  12. SEROQUEL [Suspect]
     Active Substance: QUETIAPINE FUMARATE
  13. NAVANE [Suspect]
     Active Substance: THIOTHIXENE
     Indication: BIPOLAR DISORDER
     Dosage: ?          QUANTITY:2 CAPSULE(S);?
     Route: 048
     Dates: start: 19820301, end: 20190926
  14. IRON [Concomitant]
     Active Substance: IRON
  15. VITAMIN E [Concomitant]
     Active Substance: .ALPHA.-TOCOPHEROL
  16. VITAMIN A [Concomitant]
     Active Substance: VITAMIN A

REACTIONS (5)
  - Bipolar disorder [None]
  - Nightmare [None]
  - Disorientation [None]
  - Vomiting [None]
  - Pulmonary embolism [None]

NARRATIVE: CASE EVENT DATE: 20170927
